FAERS Safety Report 7220723-9 (Version None)
Quarter: 2011Q1

REPORT INFORMATION
  Report Type: 
  Country: None (occurrence: None)
  Receive Date: 20110111
  Receipt Date: 20110105
  Transmission Date: 20110831
  Serious: Yes (Other)
  Sender: FDA-Public Use
  Company Number: GXBR2011US00465

PATIENT
  Sex: Female
  Weight: 97.506 kg

DRUGS (7)
  1. XALATAN [Concomitant]
     Indication: CATARACT
     Dosage: UNK
     Route: 047
  2. ZONEGRAN [Concomitant]
     Indication: NEURALGIA
     Dosage: 25 MG, QD2SDO
  3. MIDODRINE HYDROCHLORIDE [Suspect]
     Indication: SYNCOPE
     Dosage: 2.5 MG, ONCE/SINGLE
     Route: 048
     Dates: start: 20100101, end: 20100101
  4. INDOCIN [Concomitant]
     Indication: OSTEONECROSIS
     Dosage: 25 MG, QHS
  5. ZYRTEC [Concomitant]
     Indication: HYPERSENSITIVITY
     Dosage: 10 MG, QHS
  6. FLORINEF [Concomitant]
     Indication: SYNCOPE
     Dosage: 0.5 MG, QD
  7. LYRICA [Concomitant]
     Indication: FIBROMYALGIA
     Dosage: 50 MG, QHS

REACTIONS (4)
  - OEDEMA MOUTH [None]
  - HYPERSENSITIVITY [None]
  - DYSPNOEA [None]
  - SWOLLEN TONGUE [None]
